FAERS Safety Report 10234442 (Version 1)
Quarter: 2014Q2

REPORT INFORMATION
  Report Type: Spontaneous
  Country: GB (occurrence: GB)
  Receive Date: 20140613
  Receipt Date: 20140613
  Transmission Date: 20141212
  Serious: Yes (Other)
  Sender: FDA-Public Use
  Company Number: GB-DRREDDYS-GER/UKI/14/0041041

PATIENT
  Age: 66 Year
  Sex: Female

DRUGS (3)
  1. FEXOFENADINE [Suspect]
     Indication: MECHANICAL URTICARIA
     Route: 048
     Dates: start: 20130111, end: 20140103
  2. PIRITON [Concomitant]
     Indication: MECHANICAL URTICARIA
     Route: 048
     Dates: start: 201401
  3. ZANTAC [Concomitant]
     Indication: MECHANICAL URTICARIA
     Route: 048
     Dates: start: 201301

REACTIONS (1)
  - Dyspnoea [Recovering/Resolving]
